FAERS Safety Report 9331635 (Version 1)
Quarter: 2013Q2

REPORT INFORMATION
  Report Type: Spontaneous
  Country: US (occurrence: US)
  Receive Date: 20130605
  Receipt Date: 20130605
  Transmission Date: 20140414
  Serious: No
  Sender: FDA-Public Use
  Company Number: US-ASTRAZENECA-2013SE37197

PATIENT
  Sex: Female

DRUGS (2)
  1. ZOLADEX [Suspect]
     Indication: ENDOMETRIOSIS
     Route: 058
  2. TRAMADOL [Concomitant]

REACTIONS (2)
  - Cyst [Unknown]
  - Menstrual disorder [Unknown]
